FAERS Safety Report 18963801 (Version 3)
Quarter: 2021Q2

REPORT INFORMATION
  Report Type: Spontaneous
  Country: US (occurrence: US)
  Receive Date: 20210303
  Receipt Date: 20210409
  Transmission Date: 20210717
  Serious: Yes (Other)
  Sender: FDA-Public Use
  Company Number: US-PFIZER INC-2021201246

PATIENT
  Age: 86 Year
  Sex: Female

DRUGS (1)
  1. NIVESTYM [Suspect]
     Active Substance: FILGRASTIM-AAFI
     Dosage: 300 UG (WEEKLY FOR THREE DAYS)
     Route: 058

REACTIONS (2)
  - Mobility decreased [Unknown]
  - Infection susceptibility increased [Unknown]
